FAERS Safety Report 12925593 (Version 2)
Quarter: 2017Q1

REPORT INFORMATION
  Report Type: Spontaneous
  Country: US (occurrence: US)
  Receive Date: 20161108
  Receipt Date: 20170209
  Transmission Date: 20170428
  Serious: No
  Sender: FDA-Public Use
  Company Number: US-SA-2016SA164589

PATIENT
  Age: 71 Year
  Sex: Female

DRUGS (12)
  1. METFORMIN [Concomitant]
     Active Substance: METFORMIN HYDROCHLORIDE
  2. LIPITOR [Concomitant]
     Active Substance: ATORVASTATIN CALCIUM
  3. METOPROLOL SUCCINATE. [Concomitant]
     Active Substance: METOPROLOL SUCCINATE
  4. PRALUENT [Suspect]
     Active Substance: ALIROCUMAB
     Indication: TYPE V HYPERLIPIDAEMIA
     Route: 058
     Dates: start: 20160513
  5. ASPIRIN. [Concomitant]
     Active Substance: ASPIRIN
  6. LISINOPRIL. [Concomitant]
     Active Substance: LISINOPRIL
  7. ALENDRONATE [Concomitant]
     Active Substance: ALENDRONATE SODIUM
  8. CLOPIDOGREL [Concomitant]
     Active Substance: CLOPIDOGREL BISULFATE
  9. ALIROCUMAB PREFILLED PEN [Concomitant]
     Active Substance: ALIROCUMAB
     Indication: TYPE V HYPERLIPIDAEMIA
     Dates: start: 20160513
  10. NITROSTAT [Concomitant]
     Active Substance: NITROGLYCERIN
  11. AUBAGIO [Concomitant]
     Active Substance: TERIFLUNOMIDE
  12. RANEXA [Concomitant]
     Active Substance: RANOLAZINE

REACTIONS (2)
  - Gastritis [Unknown]
  - Headache [Unknown]

NARRATIVE: CASE EVENT DATE: 20160830
